FAERS Safety Report 7580781-9 (Version None)
Quarter: 2011Q2

REPORT INFORMATION
  Report Type: 
  Country: None (occurrence: None)
  Receive Date: 20110629
  Receipt Date: 20110628
  Transmission Date: 20111010
  Serious: Yes (Other)
  Sender: FDA-Public Use
  Company Number: IL-PFIZER INC-2011129401

PATIENT
  Sex: Male

DRUGS (1)
  1. VARENICLINE TARTRATE [Suspect]
     Dosage: UNK

REACTIONS (5)
  - EYE DISORDER [None]
  - DYSPHONIA [None]
  - CHEST PAIN [None]
  - EYELID PTOSIS [None]
  - DRUG INEFFECTIVE [None]
